FAERS Safety Report 9536116 (Version 1)
Quarter: 2013Q2

REPORT INFORMATION
  Report Type: Spontaneous
  Country: US (occurrence: None)
  Receive Date: 20130507
  Receipt Date: 20130507
  Transmission Date: 20140414
  Serious: Yes (Other)
  Sender: FDA-Public Use
  Company Number: PHEH2013US000847

PATIENT
  Age: 31 Year
  Sex: Male

DRUGS (5)
  1. AFINITOR [Suspect]
     Indication: TUBEROUS SCLEROSIS
     Route: 048
     Dates: start: 20121220
  2. RAPAMYCIN (SIROLIMUS) [Concomitant]
  3. TEGRETOL (CARBAMAZEPINE) UNKNOWN [Concomitant]
  4. SINGULAR (MONTELUKAST SODIUM) [Concomitant]
  5. DIASTAT /01384601/ (ATROPA BELLADONNA TINCTURE, CHLOROFORM AND MORPHINE TINCTURE, KAOLIN, PECTIN, PHTHALYLSULFATHIAZOLE, STREPTOMYCIN)? [Concomitant]

REACTIONS (2)
  - Hyperhidrosis [None]
  - Convulsion [None]
